FAERS Safety Report 15599597 (Version 2)
Quarter: 2018Q4

REPORT INFORMATION
  Report Type: Spontaneous
  Country: JP (occurrence: JP)
  Receive Date: 20181108
  Receipt Date: 20181119
  Transmission Date: 20190205
  Serious: Yes (Hospitalization, Other)
  Sender: FDA-Public Use
  Company Number: JP-NOVOPROD-630558

PATIENT
  Age: 47 Year
  Sex: Male

DRUGS (5)
  1. TRESIBA CHU [Suspect]
     Active Substance: INSULIN DEGLUDEC
     Dosage: (UNK) DOSE DECREASED
     Route: 058
     Dates: end: 20170724
  2. HUMALOG [Suspect]
     Active Substance: INSULIN LISPRO
     Indication: PRODUCT USED FOR UNKNOWN INDICATION
     Dosage: UNK
     Route: 065
  3. NOVORAPID [Suspect]
     Active Substance: INSULIN ASPART
     Indication: TYPE 2 DIABETES MELLITUS
     Dosage: UNK
     Route: 058
  4. TRESIBA CHU [Suspect]
     Active Substance: INSULIN DEGLUDEC
     Indication: TYPE 2 DIABETES MELLITUS
     Dosage: UNK
     Route: 058
  5. NOVORAPID [Suspect]
     Active Substance: INSULIN ASPART
     Dosage: DOSE DECREASED (UNK)
     Route: 058
     Dates: end: 20170724

REACTIONS (8)
  - Hypoglycaemia [Recovered/Resolved]
  - Intentional overdose [Unknown]
  - Hypoglycaemia [Recovered/Resolved]
  - Intentional product misuse [Unknown]
  - Hypoglycaemia [Recovered/Resolved]
  - Hypoglycaemia [Recovered/Resolved]
  - Hypoglycaemia [Recovered/Resolved]
  - Factitious disorder [Unknown]

NARRATIVE: CASE EVENT DATE: 201707
